FAERS Safety Report 23517942 (Version 1)
Quarter: 2024Q1

REPORT INFORMATION
  Report Type: Spontaneous
  Country: US (occurrence: None)
  Receive Date: 20240213
  Receipt Date: 20240213
  Transmission Date: 20240409
  Serious: Yes (Death)
  Sender: FDA-Public Use
  Company Number: None

PATIENT
  Age: 60 Year
  Sex: Male

DRUGS (1)
  1. CAPECITABINE [Suspect]
     Active Substance: CAPECITABINE
     Indication: Nasal sinus cancer
     Dosage: OTHER FREQUENCY : Q 12 HOURS DAY 1-1;?
     Route: 048
     Dates: start: 20231102

REACTIONS (1)
  - Death [None]
